FAERS Safety Report 8181828 (Version 2)
Quarter: 2014Q2

REPORT INFORMATION
  Report Type: Report from Study
  Country: US (occurrence: US)
  Receive Date: 20111014
  Receipt Date: 20140609
  Transmission Date: 20141212
  Serious: Yes (Hospitalization, Other)
  Sender: FDA-Public Use
  Company Number: US-ACTELION-A-US2011-55141

PATIENT
  Age: 73 Year
  Sex: Female

DRUGS (4)
  1. TRACLEER [Suspect]
     Indication: PULMONARY ARTERIAL HYPERTENSION
     Dosage: 62.5 MG, BID
     Route: 048
     Dates: start: 2009
  2. TRACLEER [Suspect]
     Dosage: 125 MG, BID
     Route: 048
     Dates: start: 200902
  3. KLONOPIN [Concomitant]
     Dosage: 2 MG, QD
     Dates: start: 201312
  4. HYDROCODONE [Concomitant]
     Dosage: UNK
     Dates: start: 201405

REACTIONS (8)
  - Shoulder operation [Unknown]
  - Intestinal prolapse [Not Recovered/Not Resolved]
  - Joint swelling [Unknown]
  - Drug administration error [Unknown]
  - Feeling hot [Unknown]
  - Diarrhoea [Not Recovered/Not Resolved]
  - Proctalgia [Not Recovered/Not Resolved]
  - Anorectal disorder [Not Recovered/Not Resolved]
